FAERS Safety Report 23139905 (Version 1)
Quarter: 2023Q4

REPORT INFORMATION
  Report Type: Spontaneous
  Country: US (occurrence: None)
  Receive Date: 20231101
  Receipt Date: 20231101
  Transmission Date: 20240110
  Serious: Yes (Hospitalization)
  Sender: FDA-Public Use
  Company Number: None

PATIENT
  Sex: Female

DRUGS (18)
  1. LENALIDOMIDE [Suspect]
     Active Substance: LENALIDOMIDE
     Indication: Plasma cell myeloma
     Dosage: FREQUENCY : AS DIRECTED;?
     Route: 048
     Dates: start: 20230908
  2. LENALIDOMIDE [Suspect]
     Active Substance: LENALIDOMIDE
     Dosage: FREQUENCY : AS DIRECTED;?
     Route: 048
  3. AMBIEN [Concomitant]
  4. ASPIRIN [Concomitant]
     Active Substance: ASPIRIN
  5. ATENOLOL [Concomitant]
  6. DICLOFENAC [Concomitant]
  7. DOCUSATE SOD [Concomitant]
  8. ESCITALOPRAM [Concomitant]
  9. LACTULOSE SOL [Concomitant]
  10. LEVOTHYROXIN [Concomitant]
  11. MIRTAZAPINE [Concomitant]
  12. MORPHINE SUL [Concomitant]
  13. OMEPRAZOLE [Concomitant]
  14. OXYBUTYNIN [Concomitant]
     Active Substance: OXYBUTYNIN
  15. REVLIMID [Concomitant]
     Active Substance: LENALIDOMIDE
  16. VALIUM [Concomitant]
     Active Substance: DIAZEPAM
  17. VITAMIN B12 [Concomitant]
     Active Substance: CYANOCOBALAMIN
  18. VITAMIN D3 [Concomitant]
     Active Substance: CHOLECALCIFEROL

REACTIONS (3)
  - Influenza [None]
  - Pneumonia [None]
  - Therapy interrupted [None]

NARRATIVE: CASE EVENT DATE: 20231026
